FAERS Safety Report 6686806-7 (Version None)
Quarter: 2010Q2

REPORT INFORMATION
  Report Type: 
  Country: None (occurrence: None)
  Receive Date: 20100419
  Receipt Date: 20100409
  Transmission Date: 20101027
  Serious: Yes (Hospitalization)
  Sender: FDA-Public Use
  Company Number: CZ-ABBOTT-09P-217-0572077-00

PATIENT
  Sex: Male
  Weight: 89 kg

DRUGS (7)
  1. HUMIRA [Suspect]
     Indication: COLITIS ULCERATIVE
     Route: 058
     Dates: start: 20090218
  2. VERCEF [Concomitant]
     Indication: PHARYNGITIS
     Dates: start: 20090224, end: 20090228
  3. FOLIC ACID [Concomitant]
     Indication: VITAMIN SUPPLEMENTATION
     Dates: start: 20080401
  4. AMITRIPTYLINE HCL [Concomitant]
     Indication: DEPRESSION
     Dates: start: 20080401
  5. PREDNISONE TAB [Concomitant]
     Indication: COLITIS ULCERATIVE
     Dates: start: 20080401
  6. AZAPRINE [Concomitant]
     Indication: COLITIS ULCERATIVE
     Route: 048
     Dates: start: 20071201
  7. SALAZOPYRIN EN [Concomitant]
     Indication: COLITIS ULCERATIVE
     Route: 048
     Dates: start: 20080401

REACTIONS (1)
  - DERMATITIS BULLOUS [None]
